FAERS Safety Report 25167341 (Version 1)
Quarter: 2025Q2

REPORT INFORMATION
  Report Type: Spontaneous
  Country: US (occurrence: US)
  Receive Date: 20250407
  Receipt Date: 20250407
  Transmission Date: 20250717
  Serious: No
  Sender: SANOFI AVENTIS
  Company Number: US-SA-2025SA097888

PATIENT
  Age: 12 Year
  Sex: Male
  Weight: 33.77 kg

DRUGS (1)
  1. DUPIXENT [Suspect]
     Active Substance: DUPILUMAB
     Indication: Eosinophilic gastritis
     Dosage: 300.000MG QOW
     Route: 058

REACTIONS (1)
  - Product use in unapproved indication [Unknown]
